FAERS Safety Report 9282616 (Version 1)
Quarter: 2013Q2

REPORT INFORMATION
  Report Type: Spontaneous
  Country: US (occurrence: None)
  Receive Date: 20130509
  Receipt Date: 20130509
  Transmission Date: 20140414
  Serious: Yes (Other)
  Sender: FDA-Public Use
  Company Number: None

PATIENT
  Age: 41 Year
  Sex: Male
  Weight: 114.2 kg

DRUGS (1)
  1. BUPRENORPHINE/NALOXONE [Suspect]
     Indication: SUBSTANCE ABUSE
     Dosage: 1 TAB EVERY DAY PO
     Route: 048
     Dates: start: 20130417, end: 20130502

REACTIONS (2)
  - Drug withdrawal syndrome [None]
  - Product substitution issue [None]
